FAERS Safety Report 14296894 (Version 2)
Quarter: 2017Q4

REPORT INFORMATION
  Report Type: Spontaneous
  Country: EG (occurrence: EG)
  Receive Date: 20171218
  Receipt Date: 20171227
  Transmission Date: 20180321
  Serious: Yes (Life-Threatening, Hospitalization, Other)
  Sender: FDA-Public Use
  Company Number: PHHY2017EG185045

PATIENT
  Sex: Male
  Weight: 13 kg

DRUGS (2)
  1. CEFTRIAXONE. [Suspect]
     Active Substance: CEFTRIAXONE
     Indication: PRODUCT USED FOR UNKNOWN INDICATION
     Dosage: 80 MG/KG, UNK
     Route: 065
     Dates: start: 20171210
  2. GLUCOSE [Concomitant]
     Active Substance: DEXTROSE
     Indication: PRODUCT USED FOR UNKNOWN INDICATION
     Route: 041

REACTIONS (7)
  - Respiratory distress [Unknown]
  - Somnolence [Unknown]
  - Laryngitis [Unknown]
  - Anaphylactic reaction [Recovered/Resolved]
  - Seizure [Unknown]
  - Cardiac arrest [Recovered/Resolved]
  - Loss of consciousness [Unknown]

NARRATIVE: CASE EVENT DATE: 20171210
